FAERS Safety Report 20695973 (Version 1)
Quarter: 2022Q2

REPORT INFORMATION
  Report Type: Spontaneous
  Country: MA (occurrence: None)
  Receive Date: 20220411
  Receipt Date: 20220411
  Transmission Date: 20220720
  Serious: Yes (Death, Life-Threatening, Hospitalization, Other)
  Sender: FDA-Public Use
  Company Number: MA-MLMSERVICE-20220401-3473272-1

PATIENT
  Age: 49 Year
  Sex: Female

DRUGS (3)
  1. AZITHROMYCIN [Suspect]
     Active Substance: AZITHROMYCIN
     Indication: COVID-19 treatment
     Dosage: UNKNOWN
     Route: 065
  2. HYDROXYCHLOROQUINE [Suspect]
     Active Substance: HYDROXYCHLOROQUINE
     Indication: COVID-19 treatment
     Dosage: UNKNOWN
     Route: 065
  3. DOXORUBICIN [Suspect]
     Active Substance: DOXORUBICIN
     Indication: Breast cancer
     Route: 065

REACTIONS (9)
  - Electrocardiogram QT prolonged [Fatal]
  - Bundle branch block right [Fatal]
  - Cardio-respiratory arrest [Fatal]
  - Ventricular hypokinesia [Fatal]
  - Pericardial effusion [Fatal]
  - Acute pulmonary oedema [Fatal]
  - Cardiogenic shock [Fatal]
  - Ejection fraction decreased [Fatal]
  - Mitral valve incompetence [Fatal]
